FAERS Safety Report 11972668 (Version 2)
Quarter: 2016Q1

REPORT INFORMATION
  Report Type: Spontaneous
  Country: US (occurrence: US)
  Receive Date: 20160128
  Receipt Date: 20160223
  Transmission Date: 20160526
  Serious: No
  Sender: FDA-Public Use
  Company Number: US-PFIZER INC-2016012212

PATIENT
  Age: 54 Year
  Sex: Female

DRUGS (1)
  1. TRIFLURIDINE. [Suspect]
     Active Substance: TRIFLURIDINE
     Indication: EYE INFECTION
     Dosage: UNK
     Dates: start: 20151231

REACTIONS (3)
  - Eye irritation [Unknown]
  - Product odour abnormal [Unknown]
  - Poor quality drug administered [Unknown]

NARRATIVE: CASE EVENT DATE: 20151231
